FAERS Safety Report 16393967 (Version 1)
Quarter: 2019Q3

REPORT INFORMATION
  Report Type: Spontaneous
  Country: US (occurrence: US)
  Receive Date: 20190603
  Receipt Date: 20190603
  Transmission Date: 20191004
  Serious: No
  Sender: FDA-Public Use
  Company Number: None

PATIENT

DRUGS (2)
  1. ATROPINE OPHTHALMIC SOLUTION [Suspect]
     Active Substance: ATROPINE
     Dosage: ?          OTHER FREQUENCY:ONCE;?
     Route: 047
  2. PHENYLEPRHINE OPHTHALMIC SOLUTION [Suspect]
     Active Substance: PHENYLEPHRINE HYDROCHLORIDE
     Dosage: ?          OTHER FREQUENCY:ONCE;?
     Route: 047

REACTIONS (3)
  - Product label confusion [None]
  - Wrong product administered [None]
  - Product packaging confusion [None]

NARRATIVE: CASE EVENT DATE: 20190531
